FAERS Safety Report 8846889 (Version 1)
Quarter: 2012Q4

REPORT INFORMATION
  Report Type: Spontaneous
  Country: US (occurrence: None)
  Receive Date: 20121017
  Receipt Date: 20121017
  Transmission Date: 20130627
  Serious: Yes (Hospitalization)
  Sender: FDA-Public Use
  Company Number: None

PATIENT
  Age: 54 Year
  Sex: Male

DRUGS (22)
  1. DOCETAXEL [Suspect]
     Indication: ADENOCARCINOMA LUNG
     Dosage: 3 doses starting 09/14/12, 75 mg/m2 over 60 minutes IV drip
     Route: 041
     Dates: start: 20120914
  2. CARBOPALTIN [Concomitant]
  3. ALIMTA [Concomitant]
  4. AVASTIN [Concomitant]
  5. ACYCLOVIR [Concomitant]
  6. ALLEGRA [Concomitant]
  7. ASPIRIN [Concomitant]
  8. CELEXA [Concomitant]
  9. CENTRUM SILVER [Concomitant]
  10. CIALIS [Concomitant]
  11. DECADRON [Concomitant]
  12. DEPO-TESTOSTERONE [Concomitant]
  13. EMLA 2.5%-2.5% CREAM [Concomitant]
  14. FISH OIL [Concomitant]
  15. HYCODAN [Concomitant]
  16. LEVAQUIN [Concomitant]
  17. MAGNESIUM OXIDE [Concomitant]
  18. MICARDIS [Concomitant]
  19. PRILOSEC [Concomitant]
  20. SENOKOT [Concomitant]
  21. VYTORIN [Concomitant]
  22. ZOFRAN [Concomitant]

REACTIONS (2)
  - Back pain [None]
  - Muscle strain [None]
